FAERS Safety Report 6243211-5 (Version None)
Quarter: 2009Q2

REPORT INFORMATION
  Report Type: 
  Country: None (occurrence: None)
  Receive Date: 20090624
  Receipt Date: 20090618
  Transmission Date: 20091009
  Serious: Yes (Other)
  Sender: FDA-Public Use
  Company Number: JP-JNJFOC-20090605997

PATIENT
  Sex: Male

DRUGS (1)
  1. DUROTEP MT PATCH [Suspect]
     Indication: CANCER PAIN
     Route: 062

REACTIONS (2)
  - DEPRESSED LEVEL OF CONSCIOUSNESS [None]
  - WRONG TECHNIQUE IN DRUG USAGE PROCESS [None]
